FAERS Safety Report 9450807 (Version 1)
Quarter: 2013Q3

REPORT INFORMATION
  Report Type: Spontaneous
  Country: US (occurrence: US)
  Receive Date: 20130809
  Receipt Date: 20130809
  Transmission Date: 20140515
  Serious: Yes (Other)
  Sender: FDA-Public Use
  Company Number: US-ASTRAZENECA-2013SE60599

PATIENT
  Age: 51 Year
  Sex: Female
  Weight: 38.6 kg

DRUGS (5)
  1. CRESTOR [Suspect]
     Indication: BLOOD CHOLESTEROL INCREASED
     Route: 048
     Dates: start: 2012
  2. COPAXONE [Concomitant]
     Indication: MULTIPLE SCLEROSIS
     Dosage: 20 MG 1 ML DAILY
     Route: 058
     Dates: start: 2009
  3. GABAPENTIN [Concomitant]
     Indication: MULTIPLE SCLEROSIS
     Dosage: THREE 100 MG (300 MG DAILY)
     Dates: start: 2010
  4. CITALOPRAM [Concomitant]
     Indication: NERVOUS SYSTEM DISORDER
     Dates: start: 2008
  5. CITALOPRAM [Concomitant]
     Indication: SLEEP DISORDER DUE TO A GENERAL MEDICAL CONDITION
     Dates: start: 2008

REACTIONS (1)
  - Breast cancer female [Unknown]
